FAERS Safety Report 9378253 (Version 2)
Quarter: 2013Q3

REPORT INFORMATION
  Report Type: Spontaneous
  Country: US (occurrence: US)
  Receive Date: 20130701
  Receipt Date: 20130718
  Transmission Date: 20140515
  Serious: Yes (Death)
  Sender: FDA-Public Use
  Company Number: US-GILEAD-2013-0077878

PATIENT
  Sex: Male

DRUGS (4)
  1. CAYSTON [Suspect]
     Indication: CYSTIC FIBROSIS
     Dosage: 75 MG, UNK
     Route: 055
     Dates: start: 20130118
  2. CAYSTON [Suspect]
     Indication: PSEUDOMONAS INFECTION
  3. CAYSTON [Suspect]
     Indication: STAPHYLOCOCCAL INFECTION
  4. PULMOZYME [Concomitant]

REACTIONS (2)
  - Death [Fatal]
  - Fatigue [Unknown]
